FAERS Safety Report 8556667-X (Version None)
Quarter: 2012Q2

REPORT INFORMATION
  Report Type: 
  Country: None (occurrence: None)
  Receive Date: 20120418
  Receipt Date: 20091118
  Transmission Date: 20120825
  Serious: Yes (Other)
  Sender: FDA-Public Use
  Company Number: PHEH2009US15460

PATIENT
  Age: 90 Year
  Sex: Male

DRUGS (1)
  1. ENABLEX [Suspect]
     Indication: MICTURITION URGENCY
     Dosage: 15 MG, QD, ORAL; NO TREATMENT

REACTIONS (2)
  - TREATMENT NONCOMPLIANCE [None]
  - CONFUSIONAL STATE [None]
